FAERS Safety Report 9985791 (Version 1)
Quarter: 2014Q1

REPORT INFORMATION
  Report Type: Report from Study
  Country: US (occurrence: US)
  Receive Date: 20140307
  Receipt Date: 20140307
  Transmission Date: 20141002
  Serious: No
  Sender: FDA-Public Use
  Company Number: US-ABBVIE-13P-163-1087568-00

PATIENT
  Age: 55 Year
  Sex: Female

DRUGS (8)
  1. HUMIRA [Suspect]
     Indication: COLITIS ULCERATIVE
     Route: 058
     Dates: start: 20130416
  2. HUMIRA [Suspect]
     Dosage: SECOND LOADING DOSE
     Dates: start: 20130501
  3. METFORMIN [Concomitant]
     Indication: DIABETES MELLITUS
  4. GLYBURIDE [Concomitant]
     Indication: DIABETES MELLITUS
  5. LOVASTATIN [Concomitant]
     Indication: BLOOD CHOLESTEROL INCREASED
  6. TOPROL [Concomitant]
     Indication: HYPERTENSION
  7. ASACOL [Concomitant]
     Indication: COLITIS ULCERATIVE
  8. LEVOTHYROXINE [Concomitant]
     Indication: HYPOTHYROIDISM

REACTIONS (1)
  - Injection site erythema [Not Recovered/Not Resolved]
